FAERS Safety Report 4406352-0 (Version None)
Quarter: 2004Q3

REPORT INFORMATION
  Report Type: 
  Country: None (occurrence: None)
  Receive Date: 20040723
  Receipt Date: 20030701
  Transmission Date: 20050211
  Serious: No
  Sender: FDA-Public Use
  Company Number: US-GLAXOSMITHKLINE-A0414613A

PATIENT
  Age: 39 Year
  Sex: Female

DRUGS (7)
  1. AVANDIA [Suspect]
     Route: 048
     Dates: start: 20030407, end: 20030501
  2. GLUCOPHAGE [Concomitant]
     Route: 048
  3. GLUCOTROL [Concomitant]
     Route: 048
  4. LOTREL [Concomitant]
     Route: 048
  5. TOPROL-XL [Concomitant]
     Route: 048
  6. ZANTAC [Concomitant]
     Route: 048
  7. STOOL SOFTENER [Concomitant]

REACTIONS (1)
  - BLOOD GLUCOSE DECREASED [None]
